FAERS Safety Report 23892044 (Version 1)
Quarter: 2024Q2

REPORT INFORMATION
  Report Type: Other
  Country: US (occurrence: None)
  Receive Date: 20240524
  Receipt Date: 20240524
  Transmission Date: 20240716
  Serious: No
  Sender: FDA-Public Use
  Company Number: US-ROCHE-3394347

PATIENT
  Age: 4 Year
  Sex: Female

DRUGS (8)
  1. TOCILIZUMAB [Suspect]
     Active Substance: TOCILIZUMAB
     Indication: Chronic recurrent multifocal osteomyelitis
     Route: 065
  2. NAPROXEN [Concomitant]
     Active Substance: NAPROXEN
  3. INFLIXIMAB [Concomitant]
     Active Substance: INFLIXIMAB
  4. METHOTREXATE [Concomitant]
     Active Substance: METHOTREXATE
  5. PAMIDRONATE [Concomitant]
     Active Substance: PAMIDRONATE DISODIUM
  6. ABATACEPT [Concomitant]
     Active Substance: ABATACEPT
  7. TOFACITINIB [Concomitant]
     Active Substance: TOFACITINIB
  8. LEFLUNOMIDE [Concomitant]
     Active Substance: LEFLUNOMIDE

REACTIONS (1)
  - Gastrointestinal disorder [Unknown]
